FAERS Safety Report 26185768 (Version 1)
Quarter: 2025Q4

REPORT INFORMATION
  Report Type: Spontaneous
  Country: US (occurrence: US)
  Receive Date: 20251222
  Receipt Date: 20251222
  Transmission Date: 20260118
  Serious: No
  Sender: ALEXION PHARMACEUTICALS
  Company Number: US-ASTRAZENECA-202512NAM012463US

PATIENT
  Sex: Female

DRUGS (1)
  1. SOLIRIS [Suspect]
     Active Substance: ECULIZUMAB
     Indication: Atypical haemolytic uraemic syndrome
     Dosage: EVERY 14 DAYS
     Route: 065

REACTIONS (4)
  - Alopecia [Unknown]
  - Trichorrhexis [Unknown]
  - Hair texture abnormal [Unknown]
  - Madarosis [Unknown]
